FAERS Safety Report 9844738 (Version 1)
Quarter: 2014Q1

REPORT INFORMATION
  Report Type: Spontaneous
  Country: SG (occurrence: None)
  Receive Date: 20140122
  Receipt Date: 20140122
  Transmission Date: 20141002
  Serious: Yes (Death)
  Sender: FDA-Public Use
  Company Number: 2014US00017

PATIENT
  Age: 58 Year
  Sex: Male

DRUGS (2)
  1. GEMCITABINE (GEMCITABINE) INJECTION [Suspect]
     Indication: LUNG NEOPLASM MALIGNANT
     Dosage: RELATIVE DOSE INTENSITY 0.75
  2. CARBOPLATIN (CARBOPLATIN) INJECTION [Suspect]
     Indication: LUNG NEOPLASM MALIGNANT
     Dosage: RELATIVE DOSE INTENSITY 0.70

REACTIONS (2)
  - Pneumonia aspiration [None]
  - Neutropenic sepsis [None]
